FAERS Safety Report 5020868-8 (Version None)
Quarter: 2006Q2

REPORT INFORMATION
  Report Type: 
  Country: None (occurrence: None)
  Receive Date: 20060602
  Receipt Date: 20060524
  Transmission Date: 20061013
  Serious: No
  Sender: FDA-Public Use
  Company Number: 200611253BWH

PATIENT
  Age: 46 Year
  Sex: Male
  Weight: 62.5964 kg

DRUGS (4)
  1. AVELOX [Suspect]
     Indication: SINUSITIS
     Dosage: 400 MG, QD, ORAL
     Route: 048
     Dates: start: 20060213, end: 20060214
  2. AUGMENTIN '125' [Suspect]
     Indication: SINUSITIS
     Dosage: 875 MG, TOTAL DAILY, ORAL
     Route: 048
     Dates: start: 20060201, end: 20060210
  3. BIAXIN [Suspect]
     Indication: SINUSITIS
     Dosage: 1000 MG, TOTAL DAILY, ORAL
     Route: 048
     Dates: start: 20060218, end: 20060219
  4. ASPIRIN [Concomitant]

REACTIONS (13)
  - ANXIETY [None]
  - ASTHENIA [None]
  - CHILLS [None]
  - DIARRHOEA [None]
  - DIZZINESS [None]
  - DYSPNOEA [None]
  - FATIGUE [None]
  - HEADACHE [None]
  - INSOMNIA [None]
  - NAUSEA [None]
  - PALPITATIONS [None]
  - TREMOR [None]
  - WEIGHT DECREASED [None]
